FAERS Safety Report 5950102-3 (Version None)
Quarter: 2008Q4

REPORT INFORMATION
  Report Type: 
  Country: None (occurrence: None)
  Receive Date: 20081112
  Receipt Date: 20081105
  Transmission Date: 20090506
  Serious: Yes (Death)
  Sender: FDA-Public Use
  Company Number: JP-ELI_LILLY_AND_COMPANY-JP200808005631

PATIENT
  Sex: Male

DRUGS (1)
  1. GEMZAR [Suspect]
     Indication: BILE DUCT CANCER STAGE IV
     Dosage: 400 MG, WEEKLY (1/W)
     Route: 042
     Dates: start: 20071031, end: 20080731

REACTIONS (4)
  - HAEMOLYTIC URAEMIC SYNDROME [None]
  - HEPATIC FAILURE [None]
  - MALIGNANT NEOPLASM PROGRESSION [None]
  - THROMBOTIC THROMBOCYTOPENIC PURPURA [None]
